FAERS Safety Report 9672490 (Version 1)
Quarter: 2013Q4

REPORT INFORMATION
  Report Type: Spontaneous
  Country: US (occurrence: US)
  Receive Date: 20131106
  Receipt Date: 20131106
  Transmission Date: 20140711
  Serious: No
  Sender: FDA-Public Use
  Company Number: US-TEVA-441590USA

PATIENT
  Age: 6 Year
  Sex: Male

DRUGS (1)
  1. QVAR [Suspect]
     Dates: start: 20130807, end: 2013

REACTIONS (3)
  - Skin odour abnormal [Unknown]
  - Contusion [Unknown]
  - Genital swelling [Unknown]
